FAERS Safety Report 4317129-9 (Version None)
Quarter: 2004Q1

REPORT INFORMATION
  Report Type: 
  Country: None (occurrence: None)
  Receive Date: 20040312
  Receipt Date: 20040301
  Transmission Date: 20041129
  Serious: Yes (Hospitalization)
  Sender: FDA-Public Use
  Company Number: 2004013639

PATIENT
  Age: 71 Year
  Sex: Male

DRUGS (1)
  1. ZYRTEC [Suspect]
     Indication: HYPERSENSITIVITY

REACTIONS (3)
  - LEUKOCYTOCLASTIC VASCULITIS [None]
  - PURPURA [None]
  - VASCULITIS [None]
